FAERS Safety Report 16910867 (Version 1)
Quarter: 2019Q4

REPORT INFORMATION
  Report Type: Spontaneous
  Country: US (occurrence: US)
  Receive Date: 20191012
  Receipt Date: 20191012
  Transmission Date: 20200122
  Serious: No
  Sender: FDA-Public Use
  Company Number: US-BION-007830

PATIENT
  Sex: Female

DRUGS (3)
  1. PROGESTERONE. [Suspect]
     Active Substance: PROGESTERONE
     Indication: PRODUCT USED FOR UNKNOWN INDICATION
     Dosage: STRENGTH: 200 MG
  2. ESTRADIOL. [Concomitant]
     Active Substance: ESTRADIOL
     Dosage: STRENGTH: 10 MG
  3. TESTOSTERONE. [Concomitant]
     Active Substance: TESTOSTERONE
     Dosage: STRENGTH: 85 MG

REACTIONS (2)
  - Abnormal dreams [Recovered/Resolved]
  - Feeling drunk [Recovered/Resolved]
